FAERS Safety Report 6865983-9 (Version None)
Quarter: 2010Q3

REPORT INFORMATION
  Report Type: 
  Country: None (occurrence: None)
  Receive Date: 20100722
  Receipt Date: 20100708
  Transmission Date: 20110219
  Serious: Yes (Other)
  Sender: FDA-Public Use
  Company Number: PHEH2008US00459

PATIENT
  Sex: Female

DRUGS (22)
  1. AREDIA [Suspect]
     Dosage: 30 MG, MONTHLY
     Dates: start: 20010305, end: 20020222
  2. ZOMETA [Suspect]
     Indication: BONE LESION
     Dosage: 4 MG, MONTHLY
     Dates: start: 20020312, end: 20030207
  3. MELPHALAN [Concomitant]
  4. PREDNISONE [Concomitant]
  5. LASIX [Concomitant]
  6. CIPRO [Concomitant]
     Dosage: 500 MG, BID
  7. LEVOTHYROXINE SODIUM [Concomitant]
     Dosage: 150 MCG
  8. FUROSEMIDE [Concomitant]
     Dosage: 40 MG
  9. MIACALCIN [Concomitant]
     Dosage: 200 UNITS
     Route: 045
  10. FLUZONE [Concomitant]
     Dosage: UNK
  11. GLIPIZIDE [Concomitant]
     Dosage: 25 MG
  12. CHLORHEXIDINE [Concomitant]
     Dosage: UNK
  13. AMOXICILLIN [Concomitant]
     Dosage: UNK
  14. PROAIR HFA (ALBUTEROL SULFATE) INHALATION AEROSOL [Concomitant]
     Dosage: UNK
  15. KLOR-CON [Concomitant]
     Dosage: UNK
  16. SEREVENT [Concomitant]
     Dosage: UNK
  17. PULMICORT [Concomitant]
     Dosage: UNK
  18. AVELOX [Concomitant]
     Dosage: 400 MG / QD
  19. ASPIRIN [Concomitant]
  20. NYSTATIN [Concomitant]
  21. SYNTHROID [Concomitant]
  22. SINGULAIR [Concomitant]

REACTIONS (34)
  - AMYLOIDOSIS [None]
  - ANHEDONIA [None]
  - ANXIETY [None]
  - BLOOD CHOLESTEROL DECREASED [None]
  - BONE CALLUS EXCESSIVE [None]
  - BONE DEBRIDEMENT [None]
  - BONE DISORDER [None]
  - BONE LESION [None]
  - BRONCHIECTASIS [None]
  - DIABETES MELLITUS [None]
  - DIVERTICULITIS [None]
  - ENDODONTIC PROCEDURE [None]
  - GASTRIC ULCER [None]
  - HUMERUS FRACTURE [None]
  - INJURY [None]
  - MEDIASTINAL MASS [None]
  - OBESITY [None]
  - OEDEMA PERIPHERAL [None]
  - OESOPHAGEAL STENOSIS [None]
  - OSTEOMYELITIS [None]
  - OSTEONECROSIS OF JAW [None]
  - OSTEOPENIA [None]
  - OSTEOPOROSIS [None]
  - PAIN [None]
  - PLASMACYTOMA [None]
  - RIB FRACTURE [None]
  - SCOLIOSIS [None]
  - SEQUESTRECTOMY [None]
  - SKULL X-RAY ABNORMAL [None]
  - SPINAL OSTEOARTHRITIS [None]
  - SURGERY [None]
  - THORACOTOMY [None]
  - TOOTH EXTRACTION [None]
  - TOOTHACHE [None]
